FAERS Safety Report 7179192-X (Version None)
Quarter: 2010Q4

REPORT INFORMATION
  Report Type: 
  Country: None (occurrence: None)
  Receive Date: 20101221
  Receipt Date: 20101214
  Transmission Date: 20110411
  Serious: Yes (Other)
  Sender: FDA-Public Use
  Company Number: US-SANOFI-AVENTIS-2010SA067324

PATIENT
  Age: 67 Year
  Sex: Female
  Weight: 122 kg

DRUGS (16)
  1. MULTAQ [Suspect]
     Indication: ATRIAL FIBRILLATION
     Route: 048
     Dates: start: 20100901, end: 20101103
  2. MULTAQ [Suspect]
     Route: 048
     Dates: start: 20101103
  3. PLAVIX [Suspect]
     Route: 048
     Dates: start: 20040101
  4. PLAVIX [Suspect]
     Route: 048
     Dates: start: 20040101
  5. VYTORIN [Concomitant]
  6. ASPIRIN [Concomitant]
     Route: 065
     Dates: start: 20040101
  7. PREMARIN [Concomitant]
     Dosage: DOSE:.625 UNIT(S)
  8. POTASSIUM [Concomitant]
  9. INSULIN [Concomitant]
  10. PANTOPRAZOLE [Concomitant]
  11. LASIX [Concomitant]
     Dosage: 80MG AM, 40MG AFTERNOON
  12. ZAROXOLYN [Concomitant]
  13. ZAROXOLYN [Concomitant]
     Dates: start: 20101001, end: 20101001
  14. ZAROXOLYN [Concomitant]
     Dosage: FOUR TIMES A WEEK
     Dates: start: 20101001, end: 20101102
  15. ZAROXOLYN [Concomitant]
     Dates: start: 20101103
  16. COENZYME Q10 [Concomitant]

REACTIONS (11)
  - DEVICE OCCLUSION [None]
  - DYSPNOEA [None]
  - HEART RATE INCREASED [None]
  - OFF LABEL USE [None]
  - PHOTOSENSITIVITY REACTION [None]
  - PRODUCT QUALITY ISSUE [None]
  - PRURITUS [None]
  - PULMONARY HYPERTENSION [None]
  - SWELLING [None]
  - UNDERDOSE [None]
  - WEIGHT INCREASED [None]
